FAERS Safety Report 24680622 (Version 1)
Quarter: 2024Q4

REPORT INFORMATION
  Report Type: Report from Study
  Country: JP (occurrence: JP)
  Receive Date: 20241129
  Receipt Date: 20241129
  Transmission Date: 20250114
  Serious: Yes (Hospitalization, Other)
  Sender: ALEXION PHARMACEUTICALS
  Company Number: JP-ASTRAZENECA-240053704_011620_P_1

PATIENT
  Age: 53 Year
  Weight: 48 kg

DRUGS (1)
  1. OLAPARIB [Suspect]
     Active Substance: OLAPARIB
     Indication: Breast cancer
     Dosage: DOSE UNKNOWN

REACTIONS (3)
  - Neutrophil count decreased [Recovered/Resolved]
  - Metastases to central nervous system [Unknown]
  - Bone marrow failure [Recovered/Resolved]
